FAERS Safety Report 16852097 (Version 1)
Quarter: 2019Q3

REPORT INFORMATION
  Report Type: Spontaneous
  Country: DE (occurrence: DE)
  Receive Date: 20190925
  Receipt Date: 20190925
  Transmission Date: 20191005
  Serious: Yes (Other)
  Sender: FDA-Public Use
  Company Number: DE-ASTRAZENECA-2019SF33880

PATIENT
  Age: 45 Year
  Sex: Female

DRUGS (1)
  1. DURVALUMAB. [Suspect]
     Active Substance: DURVALUMAB
     Indication: NON-SMALL CELL LUNG CANCER
     Route: 042
     Dates: start: 20150708, end: 20160401

REACTIONS (7)
  - Malignant neoplasm progression [Unknown]
  - Pruritus [Unknown]
  - Fatigue [Unknown]
  - Frequent bowel movements [Unknown]
  - Faeces soft [Unknown]
  - Total lung capacity abnormal [Unknown]
  - Dysphonia [Unknown]

NARRATIVE: CASE EVENT DATE: 20150708
